FAERS Safety Report 16906465 (Version 1)
Quarter: 2019Q4

REPORT INFORMATION
  Report Type: Other
  Country: GB (occurrence: US)
  Receive Date: 20191011
  Receipt Date: 20191011
  Transmission Date: 20200122
  Serious: Yes (Hospitalization, Other)
  Sender: FDA-Public Use
  Company Number: GB-DENTSPLY-2019SCDP000536

PATIENT
  Age: 39 Year
  Sex: Female
  Weight: 67 kg

DRUGS (8)
  1. LIDOCAINE HCL [Suspect]
     Active Substance: LIDOCAINE HYDROCHLORIDE
     Indication: LOCAL ANAESTHESIA
     Dosage: 5 MILLILITER
     Route: 008
  2. ROPIVACAINE. [Concomitant]
     Active Substance: ROPIVACAINE HYDROCHLORIDE
     Dosage: 7 MILLILITER
     Route: 008
  3. FENTANYL. [Concomitant]
     Active Substance: FENTANYL
     Dosage: 6 MILLILITER
     Route: 008
  4. ROPIVACAINE. [Concomitant]
     Active Substance: ROPIVACAINE HYDROCHLORIDE
     Indication: EPIDURAL ANALGESIA
     Dosage: 6 MILLILITER
     Route: 008
  5. ROPIVACAINE. [Concomitant]
     Active Substance: ROPIVACAINE HYDROCHLORIDE
     Dosage: 3 MILLILITER, BOLUS DOSE OF 3 ML WITH A 20 MINUTE LOCKOUT
     Route: 008
  6. FENTANYL. [Concomitant]
     Active Substance: FENTANYL
     Dosage: 20 MICROGRAM
     Route: 039
  7. LIDOCAINE HYDROCHLORIDE AND EPINEPHRINE BITARTRATE [Suspect]
     Active Substance: EPINEPHRINE BITARTRATE\LIDOCAINE HYDROCHLORIDE
     Indication: PRODUCT USED FOR UNKNOWN INDICATION
     Dosage: 3 MILLILITER, A TEST DOSE OF 3 MILLILITERS (ML) LIDOCAINE 1.5% WITH EPINEPHRINE 1:200,000
     Route: 008
  8. FENTANYL. [Concomitant]
     Active Substance: FENTANYL
     Indication: EPIDURAL ANALGESIA
     Dosage: 3 MILLILITER, BOLUS DOSE OF 3 ML WITH A 20 MINUTE LOCKOUT
     Route: 008

REACTIONS (2)
  - Nerve block [Recovered/Resolved]
  - Horner^s syndrome [Recovered/Resolved]
